FAERS Safety Report 24955472 (Version 1)
Quarter: 2025Q1

REPORT INFORMATION
  Report Type: Spontaneous
  Country: US (occurrence: None)
  Receive Date: 20250210
  Receipt Date: 20250210
  Transmission Date: 20250409
  Serious: Yes (unspecified)
  Sender: FDA-CTU
  Company Number: None

PATIENT
  Age: 55 Year
  Sex: Female
  Weight: 63 kg

DRUGS (1)
  1. SUTAB [Suspect]
     Active Substance: MAGNESIUM SULFATE\POTASSIUM CHLORIDE\SODIUM SULFATE

REACTIONS (3)
  - Vomiting [None]
  - Dysgeusia [None]
  - Diarrhoea [None]

NARRATIVE: CASE EVENT DATE: 20250209
